FAERS Safety Report 15000670 (Version 1)
Quarter: 2018Q2

REPORT INFORMATION
  Report Type: Spontaneous
  Country: US (occurrence: US)
  Receive Date: 20180612
  Receipt Date: 20180612
  Transmission Date: 20180711
  Serious: Yes (Other)
  Sender: FDA-Public Use
  Company Number: US-BAYER-2018-110199

PATIENT
  Age: 36 Year
  Sex: Female
  Weight: 68 kg

DRUGS (3)
  1. JOLIVETTE [Concomitant]
     Active Substance: NORETHINDRONE
     Dosage: UNK
  2. ALKA-SELTZER PLUS NIGHT COLD MEDICINE [Suspect]
     Active Substance: ASPIRIN\DEXTROMETHORPHAN HYDROBROMIDE\DOXYLAMINE SUCCINATE\PHENYLEPHRINE BITARTRATE
     Indication: ALLERGIC RESPIRATORY SYMPTOM
     Dosage: 1 DF, HS
     Route: 048
     Dates: start: 20180527, end: 20180530
  3. ALKA-SELTZER PLUS NIGHT COLD MEDICINE [Suspect]
     Active Substance: ASPIRIN\DEXTROMETHORPHAN HYDROBROMIDE\DOXYLAMINE SUCCINATE\PHENYLEPHRINE BITARTRATE
     Indication: NASOPHARYNGITIS
     Dosage: 2 DF, HS
     Dates: start: 20180528, end: 20180528

REACTIONS (3)
  - Depression [Recovered/Resolved]
  - Incorrect dosage administered [Unknown]
  - Suicidal ideation [Recovered/Resolved]

NARRATIVE: CASE EVENT DATE: 20180528
